FAERS Safety Report 12466690 (Version 1)
Quarter: 2016Q2

REPORT INFORMATION
  Report Type: Spontaneous
  Country: US (occurrence: US)
  Receive Date: 20160615
  Receipt Date: 20160615
  Transmission Date: 20160815
  Serious: Yes (Hospitalization)
  Sender: FDA-Public Use
  Company Number: US-JNJCP-30000340450

PATIENT
  Sex: Female
  Weight: 54 kg

DRUGS (2)
  1. CLEAN AND CLEAR BLACKHEAD ERASER CLEANSING MASK [Suspect]
     Active Substance: SALICYLIC ACID
     Indication: ACNE
     Dosage: QUARTER SIZE AMOUNT, TWICE WEEKLY
     Route: 061
     Dates: start: 20160529, end: 20160529
  2. CLEAN AND CLEAR BLACKHEAD ERASER SCRUB [Suspect]
     Active Substance: SALICYLIC ACID
     Indication: ACNE
     Route: 061
     Dates: start: 20160529, end: 20160529

REACTIONS (3)
  - Dyspnoea [Recovering/Resolving]
  - Application site papules [Recovering/Resolving]
  - Application site rash [Recovering/Resolving]

NARRATIVE: CASE EVENT DATE: 20160529
